FAERS Safety Report 11869271 (Version 2)
Quarter: 2016Q1

REPORT INFORMATION
  Report Type: Report from Study
  Country: PH (occurrence: PH)
  Receive Date: 20151226
  Receipt Date: 20160114
  Transmission Date: 20160526
  Serious: Yes (Congenital Anomaly, Other)
  Sender: FDA-Public Use
  Company Number: PHHY2015PH166607

PATIENT
  Age: 0 Day
  Sex: Male

DRUGS (2)
  1. GLIVEC [Suspect]
     Active Substance: IMATINIB MESYLATE
     Indication: FOETAL EXPOSURE DURING PREGNANCY
     Dosage: (MOTHER CASE: 400 MG, QD)
     Route: 064
  2. KIDZ KIT                           /00812001/ [Concomitant]
     Indication: TUBERCULOSIS
     Dosage: UNK
     Route: 065

REACTIONS (3)
  - Glucose-6-phosphate dehydrogenase deficiency [Unknown]
  - Cardiac murmur [Unknown]
  - Dyspnoea [Unknown]

NARRATIVE: CASE EVENT DATE: 20141221
